FAERS Safety Report 15085017 (Version 1)
Quarter: 2018Q2

REPORT INFORMATION
  Report Type: Spontaneous
  Country: GR (occurrence: GR)
  Receive Date: 20180628
  Receipt Date: 20180628
  Transmission Date: 20180711
  Serious: Yes (Other)
  Sender: FDA-Public Use
  Company Number: GR-ELI_LILLY_AND_COMPANY-GR201806008988

PATIENT
  Age: 84 Year
  Sex: Female

DRUGS (5)
  1. RENITEC                            /00935901/ [Concomitant]
     Indication: HYPERTENSION
     Dosage: 5 MG, EACH MORNING
     Route: 065
  2. LOPRESOR                           /00376902/ [Concomitant]
     Active Substance: METOPROLOL TARTRATE
     Indication: PULSE ABNORMAL
     Dosage: .25
  3. RENITEC                            /00935901/ [Concomitant]
     Dosage: 5 MG, AT NIGHT
  4. ANGORON [Concomitant]
     Active Substance: AMIODARONE HYDROCHLORIDE
     Indication: ATRIAL FIBRILLATION
  5. FORSTEO [Suspect]
     Active Substance: TERIPARATIDE
     Indication: PRODUCT USED FOR UNKNOWN INDICATION
     Dosage: 20 UG, DAILY
     Route: 058
     Dates: start: 201805, end: 20180611

REACTIONS (2)
  - Dizziness [Recovering/Resolving]
  - Arrhythmia [Recovering/Resolving]
